FAERS Safety Report 12651721 (Version 1)
Quarter: 2016Q3

REPORT INFORMATION
  Report Type: Not Available
  Country: CN (occurrence: CN)
  Receive Date: 20160815
  Receipt Date: 20160815
  Transmission Date: 20161109
  Serious: Yes (Hospitalization)
  Sender: FDA-Public Use
  Company Number: CN-PURDUE-GBR-2016-0039576

PATIENT
  Age: 62 Year
  Sex: Female

DRUGS (2)
  1. MORPHINE SULFATE PR TABLET [Suspect]
     Active Substance: MORPHINE SULFATE
     Indication: ATELECTASIS
  2. MORPHINE SULFATE PR TABLET [Suspect]
     Active Substance: MORPHINE SULFATE
     Indication: PNEUMONIA
     Dosage: 30 MG, BID
     Route: 048
     Dates: start: 20160411, end: 20160414

REACTIONS (2)
  - Hyporesponsive to stimuli [Unknown]
  - Miosis [Recovering/Resolving]

NARRATIVE: CASE EVENT DATE: 20160414
